FAERS Safety Report 6712026-3 (Version None)
Quarter: 2010Q2

REPORT INFORMATION
  Report Type: 
  Country: None (occurrence: None)
  Receive Date: 20100505
  Receipt Date: 20100428
  Transmission Date: 20101027
  Serious: Yes (Disabling)
  Sender: FDA-Public Use
  Company Number: GXBR2010US00940

PATIENT
  Sex: Female
  Weight: 72.562 kg

DRUGS (6)
  1. ALPRAZOLAM [Suspect]
     Indication: PANIC ATTACK
     Dosage: 2 MG, QD2SDO
     Route: 048
     Dates: start: 20050101
  2. GEODON [Suspect]
     Indication: BIPOLAR DISORDER
     Dosage: 80 MG, QD
     Dates: start: 20100101
  3. ABILIFY [Suspect]
     Indication: BIPOLAR DISORDER
     Dosage: UNK
     Dates: end: 20100101
  4. TOPAMAX [Suspect]
  5. CONCERTA [Concomitant]
     Indication: DEPRESSION
     Dosage: 54 MG, QD
     Dates: start: 20050101
  6. LAMICTAL [Concomitant]
     Indication: BIPOLAR DISORDER
     Dosage: 75 MG, QD

REACTIONS (4)
  - ACTIVITIES OF DAILY LIVING IMPAIRED [None]
  - ARTHRALGIA [None]
  - DYSARTHRIA [None]
  - WEIGHT INCREASED [None]
